FAERS Safety Report 7035190-8 (Version None)
Quarter: 2010Q4

REPORT INFORMATION
  Report Type: 
  Country: None (occurrence: None)
  Receive Date: 20101008
  Receipt Date: 20100929
  Transmission Date: 20110411
  Serious: Yes (Hospitalization, Other)
  Sender: FDA-Public Use
  Company Number: BE-ABBOTT-10P-013-0674298-00

PATIENT
  Age: 46 Year
  Sex: Male
  Weight: 85 kg

DRUGS (5)
  1. HUMIRA [Suspect]
     Indication: RHEUMATOID ARTHRITIS
     Dates: start: 20040601, end: 20100901
  2. MEDROL [Concomitant]
     Indication: RHEUMATOID ARTHRITIS
     Dosage: APPROXIMATELY 6MG PER DAY
  3. SOLICAM [Concomitant]
     Indication: PRODUCT USED FOR UNKNOWN INDICATION
     Dosage: VARIABLE
  4. ALLOPURINOL [Concomitant]
     Indication: HYPERURICAEMIA
  5. LEDERTREXATE [Concomitant]
     Indication: RHEUMATOID ARTHRITIS
     Dosage: 7.5MG/WEEK
     Dates: start: 20000101, end: 20090201

REACTIONS (3)
  - LIVER DISORDER [None]
  - RENAL CELL CARCINOMA [None]
  - RENAL NEOPLASM [None]
